FAERS Safety Report 5080879-3 (Version None)
Quarter: 2006Q3

REPORT INFORMATION
  Report Type: 
  Country: None (occurrence: None)
  Receive Date: 20060810
  Receipt Date: 20060726
  Transmission Date: 20061208
  Serious: Yes (Hospitalization, Other)
  Sender: FDA-Public Use
  Company Number: 2006BH012182

PATIENT
  Age: 1 Day

DRUGS (3)
  1. AMPICILLIN [Suspect]
     Indication: DRUG EXPOSURE DURING PREGNANCY
     Dosage: TRPL
     Route: 064
  2. PHENOBARBITONE [Concomitant]
  3. MIDAZOLAM [Concomitant]

REACTIONS (15)
  - APGAR SCORE LOW [None]
  - BRADYCARDIA NEONATAL [None]
  - CAESAREAN SECTION [None]
  - CONGENITAL BRAIN DAMAGE [None]
  - CONVULSION NEONATAL [None]
  - DRUG EXPOSURE DURING PREGNANCY [None]
  - FOETAL HEART RATE DECREASED [None]
  - HYPERTONIA NEONATAL [None]
  - HYPOPNOEA [None]
  - HYPOTONIA NEONATAL [None]
  - METABOLIC ACIDOSIS [None]
  - PALLOR [None]
  - QUADRIPLEGIA [None]
  - SPASTIC PARALYSIS [None]
  - VASCULAR RESISTANCE SYSTEMIC DECREASED [None]
